FAERS Safety Report 17773917 (Version 1)
Quarter: 2020Q2

REPORT INFORMATION
  Report Type: Report from Study
  Country: US (occurrence: US)
  Receive Date: 20200513
  Receipt Date: 20200513
  Transmission Date: 20200714
  Serious: Yes (Other)
  Sender: FDA-Public Use
  Company Number: US-GILEAD-2020-0459367

PATIENT
  Age: 32 Year
  Sex: Male

DRUGS (17)
  1. ZITHROMAX [Concomitant]
     Active Substance: AZITHROMYCIN DIHYDRATE
  2. TOBRAMYCIN. [Concomitant]
     Active Substance: TOBRAMYCIN
  3. TRESIBA [Concomitant]
     Active Substance: INSULIN DEGLUDEC
  4. OMEPRAZOLE SODIUM;SODIUM BICARBONATE [Concomitant]
  5. AZTREONAM LYSINE [Suspect]
     Active Substance: AZTREONAM LYSINE
     Indication: CYSTIC FIBROSIS
     Dosage: 75 MG, THREE TIMES DAILY 28 DAYS ON AND 28 DAYS OFF
     Route: 055
  6. VITAMIN C [Concomitant]
     Active Substance: ASCORBIC ACID
  7. ZINC (GLUCONATE) [Concomitant]
  8. NOVOLOG [Concomitant]
     Active Substance: INSULIN ASPART
  9. GARLIC (DEODORIZED) [Concomitant]
  10. TRIKAFTA [Concomitant]
     Active Substance: ELEXACAFTOR\IVACAFTOR\TEZACAFTOR
  11. PULMOZYME [Concomitant]
     Active Substance: DORNASE ALFA
  12. ITRACONAZOLE. [Concomitant]
     Active Substance: ITRACONAZOLE
  13. CREON [Concomitant]
     Active Substance: PANCRELIPASE AMYLASE\PANCRELIPASE LIPASE\PANCRELIPASE PROTEASE
  14. MULTIVITAMINS [VITAMINS NOS] [Concomitant]
     Active Substance: VITAMINS
  15. VITAMIN D NOS [Concomitant]
     Active Substance: VITAMIN D NOS
  16. METOPROLOL SUCCINATE. [Concomitant]
     Active Substance: METOPROLOL SUCCINATE
  17. LEVALBUTEROL [LEVOSALBUTAMOL] [Concomitant]
     Active Substance: LEVALBUTEROL

REACTIONS (3)
  - Oxygen saturation decreased [Unknown]
  - Infection [Unknown]
  - Cystic fibrosis [Unknown]
